FAERS Safety Report 7910105-6 (Version None)
Quarter: 2011Q4

REPORT INFORMATION
  Report Type: 
  Country: None (occurrence: None)
  Receive Date: 20111111
  Receipt Date: 20111026
  Transmission Date: 20120403
  Serious: Yes (Life-Threatening, Hospitalization)
  Sender: FDA-Public Use
  Company Number: JP-ROCHE-780878

PATIENT
  Sex: Female

DRUGS (46)
  1. ACTEMRA [Suspect]
     Route: 041
     Dates: start: 20081224, end: 20081224
  2. ACTEMRA [Suspect]
     Route: 041
     Dates: start: 20090902, end: 20090902
  3. ACTEMRA [Suspect]
     Route: 041
     Dates: start: 20091119, end: 20091119
  4. NITOROL R [Concomitant]
     Route: 048
  5. NABUMETONE [Concomitant]
     Route: 048
  6. LANSOPRAZOLE [Concomitant]
     Route: 048
  7. ACTEMRA [Suspect]
     Route: 041
     Dates: start: 20081001, end: 20081001
  8. ACTEMRA [Suspect]
     Route: 041
     Dates: start: 20100713, end: 20100713
  9. PREDNISOLONE [Suspect]
     Indication: RHEUMATOID ARTHRITIS
     Route: 048
  10. PREDNISOLONE [Suspect]
     Route: 048
     Dates: start: 20090827, end: 20100506
  11. PREDNISOLONE [Suspect]
     Route: 048
     Dates: start: 20100618, end: 20100713
  12. PLAVIX [Concomitant]
     Route: 048
  13. GLUCOBAY [Concomitant]
     Route: 048
  14. SULFAMETHOXAZOLE AND TRIMETHOPRIM [Concomitant]
     Route: 048
  15. ACTEMRA [Suspect]
     Route: 041
     Dates: start: 20091217, end: 20091217
  16. ACTEMRA [Suspect]
     Route: 041
  17. METHOTREXATE [Suspect]
     Route: 048
     Dates: start: 20100619, end: 20100826
  18. ACTEMRA [Suspect]
     Route: 041
     Dates: start: 20100209, end: 20100209
  19. ACTEMRA [Suspect]
     Route: 041
     Dates: start: 20100309, end: 20100309
  20. PREDNISOLONE [Suspect]
     Route: 048
     Dates: start: 20090227, end: 20090826
  21. PREDNISOLONE [Suspect]
     Route: 048
     Dates: start: 20100714, end: 20100810
  22. SULFAMETHOXAZOLE AND TRIMETHOPRIM [Concomitant]
     Route: 048
     Dates: start: 20100507, end: 20100513
  23. ACTEMRA [Suspect]
     Route: 041
     Dates: start: 20081029, end: 20081029
  24. ACTEMRA [Suspect]
     Route: 041
     Dates: start: 20091026, end: 20091026
  25. ACTEMRA [Suspect]
     Route: 041
     Dates: start: 20100113, end: 20100113
  26. PREDNISOLONE [Suspect]
     Route: 048
     Dates: start: 20100517, end: 20100617
  27. PREDNISOLONE [Suspect]
     Route: 048
     Dates: start: 20100811, end: 20100909
  28. METHOTREXATE [Suspect]
     Indication: RHEUMATOID ARTHRITIS
     Route: 048
     Dates: start: 20100114, end: 20100505
  29. PROGRAF [Concomitant]
     Indication: RHEUMATOID ARTHRITIS
     Route: 048
  30. SIGMART [Concomitant]
     Route: 048
  31. ACTEMRA [Suspect]
     Indication: RHEUMATOID ARTHRITIS
     Route: 041
     Dates: start: 20080827, end: 20080827
  32. DILTIAZEM HCL [Concomitant]
     Route: 048
  33. ACTEMRA [Suspect]
     Route: 041
     Dates: start: 20090930, end: 20090930
  34. ACTEMRA [Suspect]
     Route: 041
     Dates: start: 20100406, end: 20100406
  35. ACTEMRA [Suspect]
     Route: 041
     Dates: start: 20100618, end: 20100618
  36. PREDNISOLONE [Suspect]
     Route: 048
     Dates: start: 20081003, end: 20090226
  37. ISONIAZID [Concomitant]
     Route: 048
  38. DILTIAZEM HCL [Concomitant]
     Route: 048
  39. RISEDRONATE SODIUM [Concomitant]
     Route: 048
  40. ACTEMRA [Suspect]
     Route: 041
     Dates: start: 20081126, end: 20081126
  41. ACTEMRA [Suspect]
     Route: 041
     Dates: start: 20090127, end: 20090127
  42. ACTEMRA [Suspect]
     Route: 041
  43. PREDNISOLONE [Suspect]
     Route: 048
     Dates: start: 20100507, end: 20100511
  44. PREDNISOLONE [Suspect]
     Route: 048
     Dates: start: 20100512, end: 20100516
  45. ALFAROL [Concomitant]
     Route: 048
  46. SULFAMETHOXAZOLE AND TRIMETHOPRIM [Concomitant]
     Route: 048
     Dates: start: 20100514, end: 20100826

REACTIONS (1)
  - PNEUMOCYSTIS JIROVECI PNEUMONIA [None]
